FAERS Safety Report 14282755 (Version 1)
Quarter: 2017Q4

REPORT INFORMATION
  Report Type: Spontaneous
  Country: CN (occurrence: CN)
  Receive Date: 20171213
  Receipt Date: 20171213
  Transmission Date: 20180321
  Serious: Yes (Life-Threatening, Other)
  Sender: FDA-Public Use
  Company Number: CN-ELI_LILLY_AND_COMPANY-CN201712004997

PATIENT
  Age: 51 Year
  Sex: Female

DRUGS (21)
  1. GEMCITABINE HYDROCHLORIDE. [Suspect]
     Active Substance: GEMCITABINE HYDROCHLORIDE
     Indication: OVARIAN CANCER
     Dosage: UNK UNK, UNKNOWN
     Route: 065
  2. OXALIPLATIN. [Suspect]
     Active Substance: OXALIPLATIN
     Indication: OVARIAN CANCER
     Dosage: UNK UNK, UNKNOWN
     Route: 065
  3. DOXORUBICIN [Suspect]
     Active Substance: DOXORUBICIN
     Indication: ADENOCARCINOMA
     Dosage: UNK UNK, UNKNOWN
     Route: 065
     Dates: start: 2016
  4. CARBOPLATIN. [Suspect]
     Active Substance: CARBOPLATIN
     Indication: OVARIAN CANCER
     Dosage: UNK UNK, UNKNOWN
     Route: 065
  5. CARBOPLATIN. [Suspect]
     Active Substance: CARBOPLATIN
     Dosage: UNK UNK, UNKNOWN
     Route: 065
  6. LOBAPLATIN [Suspect]
     Active Substance: LOBAPLATIN
     Indication: ADENOCARCINOMA
     Dosage: UNK UNK, UNKNOWN
     Route: 065
  7. PACLITAXEL. [Suspect]
     Active Substance: PACLITAXEL
     Indication: OVARIAN CANCER
     Dosage: UNK UNK, UNKNOWN
     Route: 065
  8. PACLITAXEL. [Suspect]
     Active Substance: PACLITAXEL
     Indication: ADENOCARCINOMA
     Dosage: UNK UNK, UNKNOWN
     Route: 065
  9. DOCETAXEL. [Suspect]
     Active Substance: DOCETAXEL
     Indication: NEOPLASM PROGRESSION
     Dosage: UNK UNK, UNKNOWN
     Route: 065
  10. LOBAPLATIN [Suspect]
     Active Substance: LOBAPLATIN
     Indication: OVARIAN CANCER
     Dosage: UNK UNK, UNKNOWN
     Route: 065
  11. CARBOPLATIN. [Suspect]
     Active Substance: CARBOPLATIN
     Dosage: UNK UNK, UNKNOWN
     Route: 065
  12. OXALIPLATIN. [Suspect]
     Active Substance: OXALIPLATIN
     Indication: ADENOCARCINOMA
     Dosage: UNK UNK, UNKNOWN
     Route: 065
     Dates: start: 2016
  13. PACLITAXEL. [Suspect]
     Active Substance: PACLITAXEL
     Dosage: UNK UNK, UNKNOWN
     Route: 065
  14. GEMCITABINE HYDROCHLORIDE. [Suspect]
     Active Substance: GEMCITABINE HYDROCHLORIDE
     Dosage: UNK UNK, UNKNOWN
     Route: 065
  15. DOCETAXEL. [Suspect]
     Active Substance: DOCETAXEL
     Indication: ADENOCARCINOMA
     Dosage: UNK UNK, UNKNOWN
     Route: 065
  16. CARBOPLATIN. [Suspect]
     Active Substance: CARBOPLATIN
     Indication: ADENOCARCINOMA
     Dosage: UNK UNK, UNKNOWN
     Route: 065
  17. PACLITAXEL. [Suspect]
     Active Substance: PACLITAXEL
     Dosage: UNK UNK, UNKNOWN
     Route: 065
  18. CISPLATIN. [Suspect]
     Active Substance: CISPLATIN
     Indication: OVARIAN CANCER
     Dosage: UNK UNK, UNKNOWN
     Route: 065
  19. CISPLATIN. [Suspect]
     Active Substance: CISPLATIN
     Indication: ADENOCARCINOMA
     Dosage: UNK UNK, UNKNOWN
     Route: 065
  20. DOXORUBICIN [Suspect]
     Active Substance: DOXORUBICIN
     Indication: OVARIAN CANCER
     Dosage: UNK UNK, UNKNOWN
     Route: 065
  21. DOCETAXEL. [Suspect]
     Active Substance: DOCETAXEL
     Indication: OVARIAN CANCER
     Dosage: UNK UNK, UNKNOWN
     Route: 065

REACTIONS (2)
  - Drug resistance [Unknown]
  - Drug intolerance [Unknown]
